FAERS Safety Report 17007489 (Version 1)
Quarter: 2019Q4

REPORT INFORMATION
  Report Type: Spontaneous
  Country: US (occurrence: US)
  Receive Date: 20191108
  Receipt Date: 20191108
  Transmission Date: 20200122
  Serious: Yes (Hospitalization)
  Sender: FDA-Public Use
  Company Number: US-EMCURE PHARMACEUTICALS LTD-2019-EPL-1010

PATIENT
  Age: 59 Year
  Sex: Female

DRUGS (1)
  1. HYDRALAZINE HYDROCHLORIDE. [Suspect]
     Active Substance: HYDRALAZINE HYDROCHLORIDE
     Indication: HYPERTENSION
     Dosage: UNK
     Dates: start: 1981

REACTIONS (4)
  - Cholangitis acute [Recovered/Resolved]
  - Granulomatous liver disease [Recovered/Resolved]
  - Cholecystitis [Recovered/Resolved]
  - Accidental exposure to product [Unknown]
